FAERS Safety Report 15098517 (Version 1)
Quarter: 2018Q3

REPORT INFORMATION
  Report Type: Spontaneous
  Country: JP (occurrence: JP)
  Receive Date: 20180702
  Receipt Date: 20180702
  Transmission Date: 20181010
  Serious: Yes (Death)
  Sender: FDA-Public Use
  Company Number: JP-BAYER-2018-115929

PATIENT
  Age: 62 Year
  Sex: Male

DRUGS (2)
  1. NEXAVAR [Suspect]
     Active Substance: SORAFENIB
     Indication: HEPATOCELLULAR CARCINOMA
     Dosage: UNK
     Route: 048
  2. STIVARGA [Suspect]
     Active Substance: REGORAFENIB
     Indication: HEPATOCELLULAR CARCINOMA
     Route: 048

REACTIONS (5)
  - Hypertension [None]
  - Stomatitis [None]
  - Palmar-plantar erythrodysaesthesia syndrome [None]
  - Decreased appetite [None]
  - Cerebellar haemorrhage [Fatal]
